FAERS Safety Report 8169298-0 (Version None)
Quarter: 2012Q1

REPORT INFORMATION
  Report Type: 
  Country: None (occurrence: None)
  Receive Date: 20120228
  Receipt Date: 20120217
  Transmission Date: 20120608
  Serious: Yes (Hospitalization)
  Sender: FDA-Public Use
  Company Number: US-BIOGENIDEC-2012BI004912

PATIENT
  Age: 42 Year
  Sex: Female

DRUGS (1)
  1. TYSABRI [Suspect]
     Indication: MULTIPLE SCLEROSIS
     Route: 042
     Dates: start: 20100817, end: 20111125

REACTIONS (8)
  - FUNGAL INFECTION [None]
  - ABASIA [None]
  - DEPRESSION [None]
  - VOMITING [None]
  - MULTIPLE SCLEROSIS RELAPSE [None]
  - URINARY TRACT INFECTION [None]
  - WEIGHT DECREASED [None]
  - NAUSEA [None]
